FAERS Safety Report 7249535-7 (Version None)
Quarter: 2011Q1

REPORT INFORMATION
  Report Type: 
  Country: None (occurrence: None)
  Receive Date: 20110119
  Receipt Date: 20110106
  Transmission Date: 20110831
  Serious: Yes (Hospitalization)
  Sender: FDA-Public Use
  Company Number: UTC-004082

PATIENT
  Age: 77 Year
  Sex: Female
  Weight: 34 kg

DRUGS (2)
  1. DIURETICS [Concomitant]
  2. REMODULIN (1 MILLIGRAM/MILLILITERS, INJECTION FOR INFUSION) (TREPROSTI [Suspect]
     Indication: PULMONARY ARTERIAL HYPERTENSION
     Dosage: 8.64 UG/KG (0.006 UG/KG, 1 IN 1 MIN), INTRAVENOUS
     Route: 042
     Dates: start: 20101206

REACTIONS (1)
  - GASTROINTESTINAL HAEMORRHAGE [None]
